FAERS Safety Report 7357575-2 (Version None)
Quarter: 2011Q1

REPORT INFORMATION
  Report Type: 
  Country: None (occurrence: None)
  Receive Date: 20110317
  Receipt Date: 20091119
  Transmission Date: 20110831
  Serious: Yes (Hospitalization, Other)
  Sender: FDA-Public Use
  Company Number: US-BAYER-200939974NA

PATIENT
  Sex: Male
  Weight: 112 kg

DRUGS (23)
  1. TRASYLOL [Suspect]
     Indication: CORONARY ARTERY BYPASS
     Dosage: 200ML PRIME / 25CC/HOUR
     Route: 042
     Dates: start: 20031111, end: 20031111
  2. LASIX [Concomitant]
     Dosage: 20 MG, UNK
     Route: 042
     Dates: start: 20031222
  3. TRASYLOL [Suspect]
     Indication: AORTIC VALVE REPLACEMENT
     Dosage: 200 ML PRIME / 50CC THEN 25CC/HR
     Route: 042
     Dates: start: 20031222, end: 20031222
  4. MILRINONE [Concomitant]
     Dosage: 0.1 MICROGRAM
     Dates: start: 20031222
  5. NEO-SYNEPHRINOL [Concomitant]
     Dosage: 20/90/120
     Route: 042
     Dates: start: 20031222
  6. EPINEPHRINE [Concomitant]
     Dosage: 0.4/0.2/0.05/0.08/1
     Route: 042
     Dates: start: 20031222
  7. HEPARIN [Concomitant]
     Dosage: 30000/10000 UNITS
     Route: 042
     Dates: start: 20031222
  8. TRASYLOL [Suspect]
     Indication: MEDIASTINITIS
  9. ATENOLOL [Concomitant]
     Dosage: 50 MG, UNK
  10. INSULIN [Concomitant]
     Dosage: UNK
     Route: 042
     Dates: start: 20031222
  11. SYNTHROID [Concomitant]
     Indication: HYPOTHYROIDISM
     Dosage: 0.088 MCG
     Route: 048
  12. INSULIN [Concomitant]
     Dosage: 5/5/5/4 UNITS
     Route: 042
     Dates: start: 20031111
  13. ASPIRIN [Concomitant]
     Dosage: 325 MG, UNK
     Route: 048
  14. MILRINONE [Concomitant]
     Dosage: 3 MG BOLUS AND 0.375/0.5/0.7/0.6 MICROGRAMS
     Route: 042
     Dates: start: 20031111
  15. SOLU-MEDROL [Concomitant]
     Dosage: 500 MG, UNK
     Route: 042
     Dates: start: 20031111
  16. MANNITOL [Concomitant]
     Dosage: 50 G, UNK
     Route: 042
     Dates: start: 20031111
  17. GLUCOPHAGE [Concomitant]
     Dosage: 500 MG, UNK
     Route: 048
  18. NEO-SYNEPHRINOL [Concomitant]
     Dosage: 0.5/0.4/0.5 MICROGRAMS
     Route: 042
     Dates: start: 20031111
  19. TRASYLOL [Suspect]
     Indication: AORTIC SURGERY
  20. AVANDIA [Concomitant]
     Dosage: 4 MG, UNK
     Dates: start: 20010402
  21. DOPAMINE [Concomitant]
     Dosage: 5/5/7 MICROGRAMS
     Route: 042
     Dates: start: 20031111
  22. DOPAMINE [Concomitant]
     Dosage: 2 MICROGRAMS
     Route: 042
     Dates: start: 20031222
  23. TRASYLOL [Suspect]

REACTIONS (11)
  - FEAR [None]
  - PAIN [None]
  - UNEVALUABLE EVENT [None]
  - ANXIETY [None]
  - DEPRESSION [None]
  - RENAL FAILURE [None]
  - ANHEDONIA [None]
  - MULTI-ORGAN FAILURE [None]
  - RENAL INJURY [None]
  - NERVOUSNESS [None]
  - INJURY [None]
